FAERS Safety Report 4428462-4 (Version None)
Quarter: 2004Q3

REPORT INFORMATION
  Report Type: 
  Country: None (occurrence: None)
  Receive Date: 20040805
  Receipt Date: 20040728
  Transmission Date: 20050211
  Serious: Yes (Life-Threatening)
  Sender: FDA-Public Use
  Company Number: SAGL-ZLB/04/18/ ITA

PATIENT
  Age: 24 Year
  Sex: Female

DRUGS (1)
  1. SANDOGLOBULIN [Suspect]
     Indication: IMMUNODEFICIENCY
     Dosage: 9G, ONCE, I.V.
     Route: 042
     Dates: start: 20040723, end: 20040723

REACTIONS (2)
  - BRADYCARDIA [None]
  - HYPOTENSION [None]
